FAERS Safety Report 8371408-7 (Version None)
Quarter: 2012Q2

REPORT INFORMATION
  Report Type: 
  Country: None (occurrence: None)
  Receive Date: 20120518
  Receipt Date: 20120511
  Transmission Date: 20120825
  Serious: Yes (Hospitalization)
  Sender: FDA-Public Use
  Company Number: FR-FRI-1000028938

PATIENT
  Sex: Female

DRUGS (12)
  1. MEMANTINE HCL [Suspect]
     Indication: SENILE DEMENTIA
     Dosage: 10 MG
     Route: 048
     Dates: start: 20120112, end: 20120120
  2. IMOVANE [Suspect]
     Dosage: 1 DF
     Route: 048
     Dates: start: 20120106
  3. OXAZEPAM [Suspect]
     Indication: ABNORMAL BEHAVIOUR
     Dosage: 2 DF
     Route: 048
     Dates: start: 20111201
  4. MEMANTINE HCL [Suspect]
     Dosage: 10 MG
     Route: 048
     Dates: start: 20120124
  5. MIRTAZAPINE [Suspect]
     Dosage: 15 MG
     Route: 048
     Dates: start: 20120106
  6. MOVIPREP [Concomitant]
     Indication: CONSTIPATION
  7. FURADANTIN [Concomitant]
     Indication: URINARY TRACT INFECTION
     Dosage: 50 MG
     Dates: start: 20120106, end: 20120113
  8. ACETAMINOPHEN [Concomitant]
     Dosage: UP TO 4 TABLETS PER DAY AS NEEDED
     Route: 048
     Dates: start: 20120101
  9. VITAMIN D [Concomitant]
     Dosage: 0.0333 DF
     Dates: start: 20120112
  10. ZYPREXA [Suspect]
     Dosage: 1 DF
     Route: 048
     Dates: start: 20120111, end: 20120120
  11. ZYPREXA [Suspect]
     Dosage: 1 DF
     Route: 048
     Dates: start: 20120124
  12. ASPIRIN [Concomitant]
     Dosage: 1 DF
     Route: 048

REACTIONS (3)
  - DRUG INTERACTION [None]
  - CONFUSIONAL STATE [None]
  - ABNORMAL BEHAVIOUR [None]
